FAERS Safety Report 17251138 (Version 1)
Quarter: 2020Q1

REPORT INFORMATION
  Report Type: Spontaneous
  Country: SE (occurrence: SE)
  Receive Date: 20200109
  Receipt Date: 20200109
  Transmission Date: 20200409
  Serious: Yes (Other)
  Sender: FDA-Public Use
  Company Number: SE-TEVA-2020-SE-1164685

PATIENT
  Age: 68 Year
  Sex: Male

DRUGS (6)
  1. AMLODIPINE [Concomitant]
     Active Substance: AMLODIPINE BESYLATE
     Dosage: ^5^
  2. PRAVASTATIN TEVA 20 MG TABLETT [Suspect]
     Active Substance: PRAVASTATIN
     Indication: LIPIDS INCREASED
     Dosage: 20 MG PER DAY
     Route: 048
     Dates: start: 20190820, end: 20190930
  3. CANDESARTAN CILEXETIL. [Concomitant]
     Active Substance: CANDESARTAN CILEXETIL
     Dosage: ^8^
  4. TROMBYL [Concomitant]
     Active Substance: ASPIRIN
     Dosage: ^75^
  5. OMEPRAZOLE. [Concomitant]
     Active Substance: OMEPRAZOLE
     Dosage: ^20^
  6. SELOKEN [Concomitant]
     Active Substance: METOPROLOL
     Dosage: ^25^

REACTIONS (5)
  - Abdominal pain [Not Recovered/Not Resolved]
  - Product substitution issue [Not Recovered/Not Resolved]
  - Flatulence [Not Recovered/Not Resolved]
  - Diarrhoea [Not Recovered/Not Resolved]
  - Haematochezia [Not Recovered/Not Resolved]

NARRATIVE: CASE EVENT DATE: 20190820
